FAERS Safety Report 8488828-2 (Version None)
Quarter: 2012Q3

REPORT INFORMATION
  Report Type: 
  Country: None (occurrence: None)
  Receive Date: 20120705
  Receipt Date: 20120625
  Transmission Date: 20120928
  Serious: Yes (Other)
  Sender: FDA-Public Use
  Company Number: US-VERTEX PHARMACEUTICALS INC.-AE-2012-009594

PATIENT
  Sex: Female

DRUGS (3)
  1. RIBAVIRIN [Concomitant]
     Indication: HEPATITIS C
     Dates: start: 20111228
  2. PEGASYS [Concomitant]
     Indication: HEPATITIS C
     Dates: start: 20111228
  3. INCIVEK [Suspect]
     Indication: HEPATITIS C
     Route: 048
     Dates: start: 20111228, end: 20120321

REACTIONS (7)
  - ALOPECIA [None]
  - BLOOD PRESSURE FLUCTUATION [None]
  - BLOOD GLUCOSE DECREASED [None]
  - ANAEMIA [None]
  - LOSS OF CONSCIOUSNESS [None]
  - RASH PRURITIC [None]
  - DYSGEUSIA [None]
